FAERS Safety Report 11428392 (Version 1)
Quarter: 2015Q3

REPORT INFORMATION
  Report Type: Spontaneous
  Country: US (occurrence: None)
  Receive Date: 20150827
  Receipt Date: 20150827
  Transmission Date: 20151125
  Serious: Yes (Hospitalization)
  Sender: FDA-Public Use
  Company Number: None

PATIENT
  Age: 41 Year
  Sex: Male
  Weight: 91.5 kg

DRUGS (16)
  1. ONDANSETRON [Concomitant]
     Active Substance: ONDANSETRON
  2. SIMETHICONE (DIMETHICONE) [Concomitant]
     Active Substance: DIMETHICONE
  3. CIPROFLOXACIN. [Concomitant]
     Active Substance: CIPROFLOXACIN
  4. LORAZEPAM. [Concomitant]
     Active Substance: LORAZEPAM
  5. MULTIVITAMIN [Concomitant]
     Active Substance: VITAMINS
  6. PERICOLACE [Concomitant]
  7. FLUOROURACIL. [Suspect]
     Active Substance: FLUOROURACIL
  8. FENTANYL. [Concomitant]
     Active Substance: FENTANYL
  9. MIRALAX [Concomitant]
     Active Substance: POLYETHYLENE GLYCOL 3350
  10. CREON [Concomitant]
     Active Substance: PANCRELIPASE AMYLASE\PANCRELIPASE LIPASE\PANCRELIPASE PROTEASE
  11. OMEPRAZOLE. [Concomitant]
     Active Substance: OMEPRAZOLE
  12. ABRAXANE [Suspect]
     Active Substance: PACLITAXEL
  13. HYDROMORPHONE [Concomitant]
     Active Substance: HYDROMORPHONE
  14. FOLINIC ACID [Suspect]
     Active Substance: LEUCOVORIN
  15. OXALIPLATIN. [Suspect]
     Active Substance: OXALIPLATIN
  16. VISTARIL [Concomitant]
     Active Substance: HYDROXYZINE PAMOATE

REACTIONS (10)
  - Blood alkaline phosphatase increased [None]
  - Body temperature increased [None]
  - Gallbladder disorder [None]
  - Infection [None]
  - Constipation [None]
  - Decreased appetite [None]
  - Escherichia infection [None]
  - Hypophagia [None]
  - Back pain [None]
  - Infrequent bowel movements [None]

NARRATIVE: CASE EVENT DATE: 20150816
